FAERS Safety Report 9356755 (Version 2)
Quarter: 2013Q3

REPORT INFORMATION
  Report Type: Report from Study
  Country: CA (occurrence: CA)
  Receive Date: 20130619
  Receipt Date: 20130731
  Transmission Date: 20140515
  Serious: Yes (Death, Hospitalization)
  Sender: FDA-Public Use
  Company Number: PHHY2013CA062400

PATIENT
  Age: 74 Year
  Sex: Female

DRUGS (19)
  1. CLOZARIL [Suspect]
     Indication: SCHIZOAFFECTIVE DISORDER
     Dosage: UNK
     Dates: start: 20001201
  2. CLOZARIL [Suspect]
     Dosage: 100 MG, UNK
     Dates: start: 2007, end: 2013
  3. MAGNESIUM [Concomitant]
  4. METFORMIN [Concomitant]
  5. PANTOLOC//PANTOPRAZOLE SODIUM SESQUIHYDRATE [Concomitant]
  6. PRAMIPEXOLE [Concomitant]
  7. ACTONEL [Concomitant]
  8. TYLENOL [Concomitant]
  9. LIPITOR [Concomitant]
  10. CALCIUM CARBONATE [Concomitant]
  11. VITAMIN D [Concomitant]
  12. PLAVIX [Concomitant]
  13. CYMBALTA [Concomitant]
  14. DOMPERIDONE [Concomitant]
  15. EUROFER [Concomitant]
  16. SINEMET [Concomitant]
  17. LANTUS [Concomitant]
     Dosage: UNK (AT BEDNIGHT)
  18. HUMALOG [Concomitant]
     Dosage: UNK (WITH MEAL)
  19. CIPROFLOXACIN [Concomitant]

REACTIONS (3)
  - Respiratory distress [Fatal]
  - Pyrexia [Fatal]
  - Cough [Fatal]
